FAERS Safety Report 21221241 (Version 1)
Quarter: 2022Q3

REPORT INFORMATION
  Report Type: Spontaneous
  Country: CN (occurrence: CN)
  Receive Date: 20220817
  Receipt Date: 20220817
  Transmission Date: 20221027
  Serious: Yes (Other)
  Sender: FDA-Public Use
  Company Number: CN-NOVARTISPH-NVSC2022CN185263

PATIENT
  Age: 78 Year
  Sex: Male

DRUGS (5)
  1. TOBRAMYCIN [Suspect]
     Active Substance: TOBRAMYCIN
     Indication: Scleritis
     Dosage: UNK
     Route: 047
  2. DEXAMETHASONE [Suspect]
     Active Substance: DEXAMETHASONE
     Indication: Scleritis
     Dosage: UNK
     Route: 047
  3. GANCICLOVIR [Concomitant]
     Active Substance: GANCICLOVIR
     Indication: Scleritis
     Dosage: UNK
     Route: 047
  4. CYCLOSPORINE [Concomitant]
     Active Substance: CYCLOSPORINE
     Indication: Scleritis
     Dosage: UNK
     Route: 065
  5. ACYCLOVIR [Concomitant]
     Active Substance: ACYCLOVIR
     Indication: Scleritis
     Dosage: UNK
     Route: 048

REACTIONS (3)
  - Scleritis [Unknown]
  - Condition aggravated [Unknown]
  - Drug ineffective [Unknown]
